FAERS Safety Report 21893313 (Version 1)
Quarter: 2023Q1

REPORT INFORMATION
  Report Type: Spontaneous
  Country: CA (occurrence: CA)
  Receive Date: 20230121
  Receipt Date: 20230121
  Transmission Date: 20230417
  Serious: Yes (Death, Hospitalization, Other)
  Sender: FDA-Public Use
  Company Number: CA-AMGEN-CANSP2023007782

PATIENT
  Age: 68 Year
  Sex: Male

DRUGS (5)
  1. ADALIMUMAB [Suspect]
     Active Substance: ADALIMUMAB
     Indication: Cardiac sarcoidosis
     Dosage: UNK
     Route: 065
  2. PREDNISONE [Concomitant]
     Active Substance: PREDNISONE
     Indication: Cardiac sarcoidosis
     Dosage: 20 MILLIGRAM, QD
  3. PREDNISONE [Concomitant]
     Active Substance: PREDNISONE
     Indication: Antifungal prophylaxis
  4. METHOTREXATE [Concomitant]
     Active Substance: METHOTREXATE
     Indication: Cardiac sarcoidosis
     Dosage: UNK
  5. LEFLUNOMIDE [Concomitant]
     Active Substance: LEFLUNOMIDE
     Indication: Cardiac sarcoidosis
     Dosage: 20 MILLIGRAM, QD

REACTIONS (17)
  - Acute respiratory distress syndrome [Fatal]
  - Septic shock [Fatal]
  - Ventricular tachycardia [Unknown]
  - Anuria [Unknown]
  - Cardiogenic shock [Unknown]
  - Cryptococcosis [Unknown]
  - Hypotension [Unknown]
  - Exposure to SARS-CoV-2 [Unknown]
  - Hypomagnesaemia [Unknown]
  - Blood lactic acid increased [Recovered/Resolved]
  - General physical health deterioration [Unknown]
  - Malaise [Unknown]
  - Fatigue [Not Recovered/Not Resolved]
  - Haematoma [Unknown]
  - Staphylococcal infection [Unknown]
  - Drug ineffective for unapproved indication [Unknown]
  - Off label use [Unknown]
